FAERS Safety Report 5051097-X (Version None)
Quarter: 2006Q3

REPORT INFORMATION
  Report Type: 
  Country: None (occurrence: None)
  Receive Date: 20060710
  Receipt Date: 20060627
  Transmission Date: 20061208
  Serious: Yes (Life-Threatening, Other)
  Sender: FDA-Public Use
  Company Number: 2006081287

PATIENT
  Age: 74 Year
  Sex: Female
  Weight: 58.9676 kg

DRUGS (7)
  1. LIPITOR [Suspect]
     Indication: BLOOD CHOLESTEROL
     Dosage: 10 MG (10 MG DAILY) ORAL
     Route: 048
     Dates: start: 20010101
  2. VERAPAMIL [Concomitant]
  3. BENAZEPRIL HYDROCHLORIDE [Concomitant]
  4. FUROSEMIDE [Concomitant]
  5. ATENOLOL [Concomitant]
  6. WARFARIN SODIUM [Concomitant]
  7. ACETAMINOPHEN [Concomitant]

REACTIONS (7)
  - HYPOAESTHESIA [None]
  - IATROGENIC INJURY [None]
  - KNEE ARTHROPLASTY [None]
  - MUSCULOSKELETAL STIFFNESS [None]
  - MYOCARDIAL INFARCTION [None]
  - NERVE INJURY [None]
  - PROCEDURAL COMPLICATION [None]
